FAERS Safety Report 23027523 (Version 1)
Quarter: 2023Q4

REPORT INFORMATION
  Report Type: Other
  Country: None (occurrence: JP)
  Receive Date: 20231004
  Receipt Date: 20231004
  Transmission Date: 20240109
  Serious: Yes (Life-Threatening)
  Sender: FDA-Public Use
  Company Number: JP-B.Braun Medical Inc.-2146682

PATIENT
  Age: 97 Year
  Sex: Female

DRUGS (7)
  1. MEROPENEM\SODIUM CHLORIDE [Suspect]
     Active Substance: MEROPENEM\SODIUM CHLORIDE
     Indication: Escherichia infection
  2. WARFARIN [Suspect]
     Active Substance: WARFARIN
  3. LANSOPRAZOLE [Concomitant]
     Active Substance: LANSOPRAZOLE
  4. CLONAZEPAM [Concomitant]
     Active Substance: CLONAZEPAM
  5. MAGNESIUM OXIDE [Concomitant]
     Active Substance: MAGNESIUM OXIDE
  6. CILOSTAZOL [Concomitant]
     Active Substance: CILOSTAZOL
  7. Enteral component nutrition [Concomitant]

REACTIONS (2)
  - Prothrombin time prolonged [None]
  - Drug interaction [None]
